FAERS Safety Report 13045287 (Version 3)
Quarter: 2017Q1

REPORT INFORMATION
  Report Type: Spontaneous
  Country: US (occurrence: US)
  Receive Date: 20161220
  Receipt Date: 20170103
  Transmission Date: 20170428
  Serious: Yes (Hospitalization, Other)
  Sender: FDA-Public Use
  Company Number: US-RECKITT BENCKISER HEALTHCARE INT LIMITED-RB-94414-2016

PATIENT
  Age: 59 Year
  Sex: Female

DRUGS (2)
  1. MUCINEX D [Suspect]
     Active Substance: GUAIFENESIN\PSEUDOEPHEDRINE HYDROCHLORIDE
     Indication: PRODUCT USED FOR UNKNOWN INDICATION
     Dosage: 1200 MG, QD (A DAY)
     Route: 065
     Dates: start: 20161205, end: 20161205
  2. MUCINEX D [Suspect]
     Active Substance: GUAIFENESIN\PSEUDOEPHEDRINE HYDROCHLORIDE
     Dosage: 1200 MG, TID (3 DOSES OF 2 TABLETS EACH)
     Route: 065
     Dates: start: 20161206, end: 20161206

REACTIONS (6)
  - Confusional state [Unknown]
  - Contraindicated product administered [Unknown]
  - Overdose [Recovered/Resolved]
  - Incoherent [Unknown]
  - Seizure [Recovered/Resolved]
  - Sleep terror [Unknown]

NARRATIVE: CASE EVENT DATE: 201612
